FAERS Safety Report 18611435 (Version 1)
Quarter: 2020Q4

REPORT INFORMATION
  Report Type: Spontaneous
  Country: US (occurrence: US)
  Receive Date: 20201214
  Receipt Date: 20201214
  Transmission Date: 20210114
  Serious: No
  Sender: FDA-Public Use
  Company Number: None

PATIENT
  Age: 70 Year
  Sex: Male

DRUGS (1)
  1. PROLIA [Suspect]
     Active Substance: DENOSUMAB
     Indication: SENILE OSTEOPOROSIS
     Dosage: ?          OTHER FREQUENCY:EVERY 6 MONTHS;OTHER ROUTE:UNDER THE SKIN?
     Route: 058
     Dates: start: 20150212

REACTIONS (3)
  - Device defective [None]
  - Needle issue [None]
  - Drug dose omission by device [None]

NARRATIVE: CASE EVENT DATE: 20201207
